FAERS Safety Report 9222438 (Version 2)
Quarter: 2013Q2

REPORT INFORMATION
  Report Type: Spontaneous
  Country: US (occurrence: US)
  Receive Date: 20130410
  Receipt Date: 20130412
  Transmission Date: 20140414
  Serious: Yes (Hospitalization)
  Sender: FDA-Public Use
  Company Number: US-BAYER-2013-043316

PATIENT
  Age: 43 Year
  Sex: Female

DRUGS (8)
  1. YASMIN [Suspect]
  2. OCELLA [Suspect]
  3. LEVOTHYROXINE [Concomitant]
     Dosage: 0.125 MG, UNK
     Dates: start: 20090818
  4. FLUOXETINE [Concomitant]
     Dosage: 20 MG, UNK
     Dates: start: 20090818
  5. FLUOXETINE [Concomitant]
     Dosage: 20 MG, QD
     Route: 048
     Dates: start: 20090927
  6. METOPROLOL [Concomitant]
     Dosage: 25 MG, BID
     Route: 048
     Dates: start: 20090927
  7. SYNTHROID [Concomitant]
     Dosage: 125 ?G, DAILY
     Route: 048
     Dates: start: 20090927
  8. HYDROCHLOROTHIAZIDE [Concomitant]
     Dosage: 25 MG, DAILY
     Route: 048
     Dates: start: 20090927

REACTIONS (1)
  - Mesenteric vein thrombosis [Recovered/Resolved]
